FAERS Safety Report 5281126-X (Version None)
Quarter: 2007Q1

REPORT INFORMATION
  Report Type: 
  Country: None (occurrence: None)
  Receive Date: 20070323
  Receipt Date: 20070313
  Transmission Date: 20070707
  Serious: Yes (Other)
  Sender: FDA-Public Use
  Company Number: GXKR2007IN02496

PATIENT
  Age: 29 Year
  Sex: Female

DRUGS (2)
  1. CLOZAPINE [Suspect]
     Indication: SCHIZOAFFECTIVE DISORDER
     Dosage: SEE IMAGE
  2. VALPROATE SODIUM (VALPROATE SODIUM) UNKNOWN [Concomitant]

REACTIONS (3)
  - CATAPLEXY [None]
  - DROP ATTACKS [None]
  - ELECTROENCEPHALOGRAM ABNORMAL [None]
